FAERS Safety Report 7724165-9 (Version None)
Quarter: 2011Q3

REPORT INFORMATION
  Report Type: 
  Country: None (occurrence: None)
  Receive Date: 20110901
  Receipt Date: 20110822
  Transmission Date: 20111222
  Serious: Yes (Hospitalization)
  Sender: FDA-Public Use
  Company Number: BR-US-EMD SERONO, INC.-7077620

PATIENT
  Sex: Female

DRUGS (3)
  1. REBIF [Suspect]
     Dates: start: 20110815
  2. REBIF [Suspect]
     Indication: RELAPSING-REMITTING MULTIPLE SCLEROSIS
     Dates: start: 20040301, end: 20110814
  3. MANTIDAN [Concomitant]

REACTIONS (7)
  - MUSCULAR WEAKNESS [None]
  - DYSURIA [None]
  - HYPOAESTHESIA [None]
  - FALL [None]
  - UTERINE PAIN [None]
  - HEADACHE [None]
  - INJECTION SITE ERYTHEMA [None]
